FAERS Safety Report 19903382 (Version 1)
Quarter: 2021Q4

REPORT INFORMATION
  Report Type: Spontaneous
  Country: NL (occurrence: IT)
  Receive Date: 20211001
  Receipt Date: 20211001
  Transmission Date: 20220304
  Serious: Yes (Death, Other)
  Sender: FDA-Public Use
  Company Number: None

PATIENT

DRUGS (14)
  1. POTELIGEO [Suspect]
     Active Substance: MOGAMULIZUMAB-KPKC
     Indication: Cutaneous T-cell lymphoma
     Dosage: 66 MG
     Route: 042
     Dates: start: 20201005, end: 20210812
  2. TARGRETIN [Suspect]
     Active Substance: BEXAROTENE
     Indication: Cutaneous T-cell lymphoma
     Dosage: 300 MG
     Route: 048
     Dates: start: 20200511, end: 20210812
  3. CANRENONE [Concomitant]
     Active Substance: CANRENONE
     Indication: Product used for unknown indication
     Dosage: 200 MG
     Route: 048
     Dates: end: 20210819
  4. REGALBAX [Concomitant]
     Indication: Product used for unknown indication
     Dosage: 300 MG
     Route: 048
     Dates: end: 20210819
  5. PREDNISONE [Concomitant]
     Active Substance: PREDNISONE
     Indication: Product used for unknown indication
     Dosage: 50 MG
     Route: 048
     Dates: end: 20210819
  6. OMEGA-3 FATTY ACIDS [Concomitant]
     Active Substance: OMEGA-3 FATTY ACIDS
     Indication: Product used for unknown indication
     Dosage: 1000 MG
     Route: 048
     Dates: end: 20210819
  7. ACETAMINOPHEN\OXYCODONE HYDROCHLORIDE [Concomitant]
     Active Substance: ACETAMINOPHEN\OXYCODONE HYDROCHLORIDE
     Indication: Product used for unknown indication
     Dosage: 2 DF
     Route: 048
     Dates: end: 20210819
  8. LEVOTHYROXINE SODIUM [Concomitant]
     Active Substance: LEVOTHYROXINE SODIUM
     Indication: Product used for unknown indication
     Dosage: 125 MG
     Route: 048
     Dates: end: 20210819
  9. PANTOFIR [Concomitant]
     Indication: Product used for unknown indication
     Dosage: 20 MG
     Route: 048
     Dates: end: 20210819
  10. VALACYCLOVIR HYDROCHLORIDE [Concomitant]
     Active Substance: VALACYCLOVIR HYDROCHLORIDE
     Indication: Product used for unknown indication
     Dosage: 1000 MG
     Route: 048
     Dates: start: 20201005, end: 20210812
  11. ITRACONAZOLO DOC [Concomitant]
     Indication: Product used for unknown indication
     Dosage: 100 MG
     Route: 048
     Dates: start: 20201005, end: 20210819
  12. BACTRIM [Concomitant]
     Active Substance: SULFAMETHOXAZOLE\TRIMETHOPRIM
     Indication: Product used for unknown indication
     Dosage: 1 DF
     Route: 048
     Dates: start: 20201005, end: 20210812
  13. LIPIDOVER [Concomitant]
     Indication: Product used for unknown indication
     Dosage: 20 MG
     Route: 065
     Dates: end: 20210819
  14. PAROXETINE HYDROCHLORIDE [Concomitant]
     Active Substance: PAROXETINE HYDROCHLORIDE
     Indication: Product used for unknown indication
     Dosage: 40 MG
     Route: 048
     Dates: end: 20210819

REACTIONS (1)
  - Septic shock [Fatal]

NARRATIVE: CASE EVENT DATE: 20210819
